FAERS Safety Report 20515539 (Version 2)
Quarter: 2022Q1

REPORT INFORMATION
  Report Type: Spontaneous
  Country: US (occurrence: US)
  Receive Date: 20220224
  Receipt Date: 20220322
  Transmission Date: 20220423
  Serious: No
  Sender: FDA-Public Use
  Company Number: US-GSKCCFUS-Case-01301805_AE-75842

PATIENT
  Age: 7 Year
  Sex: Male

DRUGS (1)
  1. ADVAIR DISKUS [Suspect]
     Active Substance: FLUTICASONE PROPIONATE\SALMETEROL XINAFOATE
     Indication: Product used for unknown indication
     Dosage: 1 PUFF(S), BID (100/50 MCG)
     Route: 055

REACTIONS (2)
  - Product dose omission issue [Unknown]
  - Product complaint [Unknown]

NARRATIVE: CASE EVENT DATE: 20220214
